FAERS Safety Report 25544905 (Version 2)
Quarter: 2025Q3

REPORT INFORMATION
  Report Type: Spontaneous
  Country: EU (occurrence: EU)
  Receive Date: 20250711
  Receipt Date: 20250812
  Transmission Date: 20251021
  Serious: Yes (Hospitalization)
  Sender: SANDOZ
  Company Number: None

PATIENT
  Age: 2 Year
  Sex: Female
  Weight: 13 kg

DRUGS (14)
  1. DULOXETINE HYDROCHLORIDE [Suspect]
     Active Substance: DULOXETINE HYDROCHLORIDE
     Indication: Accidental exposure to product by child
     Route: 048
     Dates: start: 20250531, end: 20250531
  2. ELETRIPTAN [Suspect]
     Active Substance: ELETRIPTAN
     Indication: Accidental exposure to product by child
     Route: 048
     Dates: start: 20250531, end: 20250531
  3. FENOFIBRATE [Suspect]
     Active Substance: FENOFIBRATE
     Indication: Accidental exposure to product by child
     Route: 048
     Dates: start: 20250531, end: 20250531
  4. GABAPENTIN [Suspect]
     Active Substance: GABAPENTIN
     Indication: Accidental exposure to product by child
     Route: 048
     Dates: start: 20250531, end: 20250531
  5. LANSOPRAZOLE [Suspect]
     Active Substance: LANSOPRAZOLE
     Indication: Accidental exposure to product by child
     Route: 048
     Dates: start: 20250531, end: 20250531
  6. LEVOTHYROXINE SODIUM [Suspect]
     Active Substance: LEVOTHYROXINE SODIUM
     Indication: Accidental exposure to product by child
     Route: 048
     Dates: start: 20250531, end: 20250531
  7. LORAZEPAM [Suspect]
     Active Substance: LORAZEPAM
     Indication: Accidental exposure to product by child
     Route: 048
     Dates: start: 20250531, end: 20250531
  8. METFORMIN HYDROCHLORIDE [Suspect]
     Active Substance: METFORMIN HYDROCHLORIDE
     Indication: Accidental exposure to product by child
     Route: 048
     Dates: start: 20250531, end: 20250531
  9. OLANZAPINE [Suspect]
     Active Substance: OLANZAPINE
     Indication: Accidental exposure to product by child
     Route: 048
     Dates: start: 20250531, end: 20250531
  10. ACETAMINOPHEN [Suspect]
     Active Substance: ACETAMINOPHEN
     Indication: Accidental exposure to product by child
     Route: 048
     Dates: start: 20250531, end: 20250531
  11. PERINDOPRIL [Suspect]
     Active Substance: PERINDOPRIL
     Indication: Accidental exposure to product by child
     Route: 048
     Dates: start: 20250531, end: 20250531
  12. HERBALS\SAW PALMETTO [Suspect]
     Active Substance: HERBALS\SAW PALMETTO
     Indication: Accidental exposure to product by child
     Route: 048
     Dates: start: 20250531, end: 20250531
  13. QUETIAPINE [Suspect]
     Active Substance: QUETIAPINE
     Indication: Accidental exposure to product by child
     Route: 048
     Dates: start: 20250531, end: 20250531
  14. AMISULPRIDE [Suspect]
     Active Substance: AMISULPRIDE
     Indication: Accidental exposure to product by child
     Route: 048
     Dates: start: 20250531, end: 20250531

REACTIONS (3)
  - Abdominal pain [Recovered/Resolved]
  - Vomiting [Recovered/Resolved]
  - Accidental exposure to product by child [Recovered/Resolved]

NARRATIVE: CASE EVENT DATE: 20250531
